FAERS Safety Report 8402161-6 (Version None)
Quarter: 2012Q2

REPORT INFORMATION
  Report Type: 
  Country: None (occurrence: None)
  Receive Date: 20120601
  Receipt Date: 20120528
  Transmission Date: 20120825
  Serious: Yes (Death)
  Sender: FDA-Public Use
  Company Number: US-SANOFI-AVENTIS-2012SA038430

PATIENT

DRUGS (5)
  1. FLUOROURACIL [Suspect]
     Dosage: 1200 MG/M2/DAY AS 24-HR CONTINUOUS INFUSION FOR 2 CONSECUTIVE DAYS (TOTAL INFUSION DOSE: 2400 MG/M2)
     Route: 065
  2. OXALIPLATIN [Suspect]
     Dosage: INFUSION ADMINISTERED CONCURRENTLY OVER 2 HOURS ON DAY 1 AND 15 OF EACH 28 DAY CYCLE
     Route: 065
  3. FLUOROURACIL [Suspect]
     Dosage: ADMINISTERED ON DAY 1 AND 15 OF EACH 28 DAY CYCLE
     Route: 040
  4. LEUCOVORIN CALCIUM [Suspect]
     Dosage: INFUSION THROUGH A T-CONNECTOR ON DAY 1 AND 15 OF EACH 28 DAY CYCLE
     Route: 065
  5. BEVACIZUMAB [Suspect]
     Dosage: INFUSION GIVEN OVER 30 MINUTES ON DAY 1 AND 15 OF EACH 28 DAY CYCLE
     Route: 065

REACTIONS (1)
  - RESPIRATORY FAILURE [None]
